FAERS Safety Report 5512966-7 (Version None)
Quarter: 2007Q4

REPORT INFORMATION
  Report Type: 
  Country: None (occurrence: None)
  Receive Date: 20071112
  Receipt Date: 20071031
  Transmission Date: 20080405
  Serious: Yes (Hospitalization)
  Sender: FDA-Public Use
  Company Number: SE-AMGEN-US228719

PATIENT
  Age: 62 Year
  Sex: Male

DRUGS (6)
  1. ENBREL [Suspect]
     Indication: RHEUMATOID ARTHRITIS
     Dates: start: 20050501
  2. ENALAPRIL MALEATE [Concomitant]
  3. CALCIUM WITH VITAMIN D [Concomitant]
  4. SIMVASTATIN [Concomitant]
  5. FOSAMAX [Concomitant]
  6. TROMBYL [Concomitant]

REACTIONS (1)
  - RETINAL DETACHMENT [None]
